FAERS Safety Report 4700057-4 (Version None)
Quarter: 2005Q2

REPORT INFORMATION
  Report Type: 
  Country: None (occurrence: None)
  Receive Date: 20050627
  Receipt Date: 20050624
  Transmission Date: 20051028
  Serious: Yes (Other)
  Sender: FDA-Public Use
  Company Number: US-GLAXOSMITHKLINE-A0564108A

PATIENT
  Age: 34 Year
  Sex: Female

DRUGS (3)
  1. AVANDIA [Suspect]
     Dosage: 2MG PER DAY
     Route: 048
     Dates: start: 20050325, end: 20050610
  2. AVANDAMET [Suspect]
     Route: 048
     Dates: start: 20050207, end: 20050325
  3. METFORMIN HCL [Suspect]
     Dates: start: 20050325

REACTIONS (4)
  - ASTHENIA [None]
  - BLOOD PRESSURE INCREASED [None]
  - HEPATIC ENZYME INCREASED [None]
  - STOMACH DISCOMFORT [None]
